FAERS Safety Report 7306487-9 (Version None)
Quarter: 2011Q1

REPORT INFORMATION
  Report Type: 
  Country: None (occurrence: None)
  Receive Date: 20110222
  Receipt Date: 20110210
  Transmission Date: 20110831
  Serious: Yes (Other)
  Sender: FDA-Public Use
  Company Number: CH-AMGEN-CHESP2011007836

PATIENT
  Age: 53 Year
  Sex: Female
  Weight: 112 kg

DRUGS (9)
  1. TORAMID [Concomitant]
     Dosage: 20 MG, QD
  2. TRANDATE [Concomitant]
     Dosage: 200 MG, UNK
     Route: 048
     Dates: end: 20110121
  3. OXYCONTIN [Concomitant]
     Dosage: 20 MG, Q6H
     Route: 048
  4. MICARDIS [Concomitant]
     Dosage: 80 MG, QD
     Route: 048
     Dates: end: 20110121
  5. ZANIDIP [Concomitant]
     Dosage: 20 MG, QD
     Route: 048
     Dates: end: 20110121
  6. DICLOFENAC [Concomitant]
     Dosage: 50 MG, UNK
     Route: 048
     Dates: end: 20110121
  7. ALDACTONE [Concomitant]
     Dosage: 25 MG, QD
     Route: 048
  8. SAROTEN [Concomitant]
     Dosage: 50 MG, BID
     Route: 048
     Dates: end: 20110121
  9. PROLIA [Suspect]
     Indication: OSTEOGENESIS IMPERFECTA
     Dosage: UNK UNK, Q6MO
     Route: 058
     Dates: start: 20101220

REACTIONS (3)
  - CONGESTIVE CARDIOMYOPATHY [None]
  - CARDIAC FAILURE [None]
  - RASH [None]
